FAERS Safety Report 11032902 (Version 2)
Quarter: 2015Q2

REPORT INFORMATION
  Report Type: Spontaneous
  Country: US (occurrence: US)
  Receive Date: 20150415
  Receipt Date: 20150525
  Transmission Date: 20150821
  Serious: No
  Sender: FDA-Public Use
  Company Number: US-JNJFOC-20140508847

PATIENT
  Sex: Female

DRUGS (2)
  1. XARELTO [Suspect]
     Active Substance: RIVAROXABAN
     Indication: PRODUCT USED FOR UNKNOWN INDICATION
     Route: 048
  2. UNSPECIFIED CARDIAC MEDICINE [Suspect]
     Active Substance: UNSPECIFIED INGREDIENT
     Indication: CARDIAC STRESS TEST
     Route: 065
     Dates: start: 201404, end: 201404

REACTIONS (6)
  - Therapeutic response unexpected [Unknown]
  - Nasopharyngitis [Recovering/Resolving]
  - Sensory disturbance [Not Recovered/Not Resolved]
  - Epistaxis [Unknown]
  - Headache [Not Recovered/Not Resolved]
  - Feeling abnormal [Unknown]

NARRATIVE: CASE EVENT DATE: 201404
